FAERS Safety Report 10185196 (Version 1)
Quarter: 2014Q2

REPORT INFORMATION
  Report Type: Spontaneous
  Country: JP (occurrence: JP)
  Receive Date: 20140521
  Receipt Date: 20140521
  Transmission Date: 20141212
  Serious: Yes (Death)
  Sender: FDA-Public Use
  Company Number: JP-MALLINCKRODT-T201402249

PATIENT
  Age: 63 Year
  Sex: Female
  Weight: 43 kg

DRUGS (7)
  1. METHADONE [Suspect]
     Indication: CANCER PAIN
     Dosage: 15 MG (30 MG DAILY DOSE)
     Route: 048
     Dates: start: 20140411, end: 20140430
  2. OXYNORM [Concomitant]
     Indication: PRODUCT USED FOR UNKNOWN INDICATION
     Dosage: 10-20 MG PRN
     Route: 048
     Dates: start: 20140414
  3. OSTELUC [Concomitant]
     Dosage: 800 MG, UNK
     Route: 048
  4. MEXITIL [Concomitant]
     Dosage: 300 MG, UNK
     Route: 048
     Dates: end: 20140411
  5. MECOBALAMIN [Concomitant]
     Indication: PRODUCT USED FOR UNKNOWN INDICATION
     Dosage: 1500 MG, UNK
     Route: 048
     Dates: start: 20140414
  6. ADETPHOS [Concomitant]
     Dosage: 300 MG, UNK
     Route: 048
     Dates: start: 20140414
  7. MAGMITT [Concomitant]
     Dosage: 1980 MG, UNK
     Route: 048

REACTIONS (1)
  - Gastric cancer [Fatal]
